FAERS Safety Report 8390084 (Version 2)
Quarter: 2013Q2

REPORT INFORMATION
  Report Type: Spontaneous
  Country: US (occurrence: None)
  Receive Date: 20111221
  Receipt Date: 20121227
  Transmission Date: 20140414
  Serious: Yes (Hospitalization)
  Sender: FDA-Public Use
  Company Number: PHHY2011US16699

PATIENT
  Age: 25 Year
  Sex: Female
  Weight: 72.6 kg

DRUGS (4)
  1. EXJADE [Suspect]
     Indication: SICKLE CELL ANAEMIA
     Dosage: 1500 MG, QD, ORAL
     Route: 048
     Dates: start: 20080303
  2. NORCO [Concomitant]
  3. ORTHO TRI CYCLEN [Concomitant]
  4. FOLIC ACID [Concomitant]

REACTIONS (2)
  - SICKLE CELL ANAEMIA WITH CRISIS [None]
  - DRUG ADMINISTRATION ERROR [None]
